FAERS Safety Report 9245851 (Version 1)
Quarter: 2013Q2

REPORT INFORMATION
  Report Type: Spontaneous
  Country: US (occurrence: US)
  Receive Date: 20130422
  Receipt Date: 20130422
  Transmission Date: 20140414
  Serious: Yes (Other)
  Sender: FDA-Public Use
  Company Number: US-BRISTOL-MYERS SQUIBB COMPANY-17473539

PATIENT
  Sex: Male

DRUGS (1)
  1. ELIQUIS [Suspect]
     Dosage: FILM COATED TABLET
     Route: 065

REACTIONS (1)
  - Cystitis haemorrhagic [Recovered/Resolved]
